FAERS Safety Report 10732237 (Version 1)
Quarter: 2015Q1

REPORT INFORMATION
  Report Type: Spontaneous
  Country: US (occurrence: None)
  Receive Date: 20150120
  Receipt Date: 20150120
  Transmission Date: 20150721
  Serious: Yes (Death, Life-Threatening, Hospitalization)
  Sender: FDA-Public Use
  Company Number: HYP201501-000001

PATIENT
  Age: 63 Year
  Sex: Male
  Weight: 105.7 kg

DRUGS (10)
  1. PRAMIPEXOLE [Concomitant]
     Active Substance: PRAMIPEXOLE
  2. MICOTIN (MICONAZOLE NITRATE) [Concomitant]
  3. SPIRIVA (TIOTROPIUM BROMIDE) [Concomitant]
  4. LEVOTHYROXINE [Concomitant]
     Active Substance: LEVOTHYROXINE
  5. RAVICTI [Suspect]
     Active Substance: GLYCEROL PHENYLBUTYRATE
     Indication: UREA CYCLE ENZYME DEFICIENCY
     Dates: start: 201402
  6. POTASSIUM CHLORIDE. [Concomitant]
     Active Substance: POTASSIUM CHLORIDE
  7. METOLAZONE. [Concomitant]
     Active Substance: METOLAZONE
  8. MINOCYCLINE [Concomitant]
     Active Substance: MINOCYCLINE\MINOCYCLINE HYDROCHLORIDE
  9. PHENOBARBITAL. [Concomitant]
     Active Substance: PHENOBARBITAL
  10. RIFAXIMIN [Concomitant]
     Active Substance: RIFAXIMIN

REACTIONS (11)
  - Bleeding varicose vein [None]
  - Disease complication [None]
  - Enterococcus test positive [None]
  - Respiratory failure [None]
  - Melaena [None]
  - Bacteraemia [None]
  - Cellulitis [None]
  - Hypoglycaemia [None]
  - Mental status changes [None]
  - Hepatic failure [None]
  - Myxoedema coma [None]

NARRATIVE: CASE EVENT DATE: 2014
